FAERS Safety Report 24430717 (Version 1)
Quarter: 2024Q4

REPORT INFORMATION
  Report Type: Report from Study
  Country: US (occurrence: US)
  Receive Date: 20241013
  Receipt Date: 20241013
  Transmission Date: 20250115
  Serious: Yes (Other)
  Sender: JOHNSON AND JOHNSON
  Company Number: US-JNJFOC-20241017703

PATIENT
  Age: 42 Year
  Sex: Female

DRUGS (2)
  1. SPRAVATO [Suspect]
     Active Substance: ESKETAMINE
     Indication: Depression
     Dosage: 84 MG, 30 TOTAL DOSES
     Dates: start: 20231030, end: 20240926
  2. SPRAVATO [Suspect]
     Active Substance: ESKETAMINE
     Dosage: 112 MG, 1 TOTAL DOSES
     Dates: start: 20241003, end: 20241003

REACTIONS (2)
  - Extra dose administered [Unknown]
  - Sedation [Recovered/Resolved]

NARRATIVE: CASE EVENT DATE: 20241003
